FAERS Safety Report 12120848 (Version 1)
Quarter: 2016Q1

REPORT INFORMATION
  Report Type: Spontaneous
  Country: US (occurrence: US)
  Receive Date: 20160226
  Receipt Date: 20160226
  Transmission Date: 20160526
  Serious: No
  Sender: FDA-Public Use
  Company Number: US-ALLERGAN-1308151US

PATIENT
  Age: 61 Year
  Sex: Female

DRUGS (2)
  1. REFRESH LIQUIGEL [Suspect]
     Active Substance: CARBOXYMETHYLCELLULOSE SODIUM
     Indication: PRODUCT USED FOR UNKNOWN INDICATION
     Dosage: 2 GTT, QHS
     Route: 047
     Dates: start: 20130509, end: 20130511
  2. REFRESH OPTIVE [Suspect]
     Active Substance: CARBOXYMETHYLCELLULOSE SODIUM\GLYCERIN
     Indication: PRODUCT USED FOR UNKNOWN INDICATION
     Dosage: UNK
     Dates: start: 20130509, end: 20130511

REACTIONS (8)
  - Scleral hyperaemia [Recovering/Resolving]
  - Lacrimation increased [Recovering/Resolving]
  - Visual impairment [Recovering/Resolving]
  - Eye swelling [Recovering/Resolving]
  - Drug hypersensitivity [Recovering/Resolving]
  - Eye irritation [Recovering/Resolving]
  - Eyelid oedema [Recovering/Resolving]
  - Eye pain [Recovering/Resolving]
